FAERS Safety Report 4466928-1 (Version None)
Quarter: 2004Q4

REPORT INFORMATION
  Report Type: 
  Country: None (occurrence: None)
  Receive Date: 20041001
  Receipt Date: 20040920
  Transmission Date: 20050328
  Serious: Yes (Other)
  Sender: FDA-Public Use
  Company Number: 198017

PATIENT
  Age: 53 Year
  Sex: Female
  Weight: 51.7101 kg

DRUGS (4)
  1. AVONEX [Suspect]
     Indication: MULTIPLE SCLEROSIS
     Dosage: 30 MCG QW IM
     Route: 030
     Dates: start: 20020927, end: 20030901
  2. AVONEX [Suspect]
     Indication: MULTIPLE SCLEROSIS
     Dosage: 30 MCG QW IM
     Route: 030
     Dates: start: 20030901, end: 20040517
  3. INHALER (NOS) [Concomitant]
  4. ADVAIR DISKUS 100/50 [Concomitant]

REACTIONS (11)
  - ANOREXIA [None]
  - ANXIETY [None]
  - AORTIC VALVE DISEASE [None]
  - DEPRESSION [None]
  - DYSPNOEA [None]
  - GRANULOMA [None]
  - PERICARDIAL EFFUSION [None]
  - PULMONARY GRANULOMA [None]
  - PULMONARY SARCOIDOSIS [None]
  - SYSTEMIC INFLAMMATORY RESPONSE SYNDROME [None]
  - WEIGHT DECREASED [None]
